FAERS Safety Report 7524606-6 (Version None)
Quarter: 2011Q2

REPORT INFORMATION
  Report Type: 
  Country: None (occurrence: None)
  Receive Date: 20110606
  Receipt Date: 20110527
  Transmission Date: 20111010
  Serious: No
  Sender: FDA-Public Use
  Company Number: US-JNJFOC-20110600394

PATIENT
  Sex: Female
  Weight: 113.4 kg

DRUGS (14)
  1. SKELAXIN [Concomitant]
     Indication: MUSCLE RELAXANT THERAPY
     Route: 048
  2. FENTANYL-100 [Suspect]
     Indication: INTERVERTEBRAL DISC PROTRUSION
     Route: 062
     Dates: start: 20110524
  3. ADVAIR DISKUS 100/50 [Concomitant]
     Indication: ASTHMA
     Route: 055
  4. OXYCODONE HCL [Concomitant]
     Indication: BREAKTHROUGH PAIN
     Route: 048
  5. NAPROXEN [Concomitant]
     Route: 048
  6. VALIUM [Concomitant]
     Indication: ANXIETY
     Route: 048
  7. CYMBALTA [Concomitant]
     Indication: DEPRESSION
     Route: 048
  8. ABILIFY [Concomitant]
     Indication: PAIN
     Route: 048
  9. VALIUM [Concomitant]
     Indication: MUSCLE RELAXANT THERAPY
     Route: 048
  10. ALBUTEROL SULFATE AUTOHALER [Concomitant]
     Route: 055
  11. ABILIFY [Concomitant]
     Indication: DEPRESSION
     Route: 048
  12. ZYRTEC [Concomitant]
     Route: 048
  13. VITAMIN TAB [Concomitant]
     Route: 065
  14. CYMBALTA [Concomitant]
     Indication: PAIN
     Route: 048

REACTIONS (1)
  - WRONG TECHNIQUE IN DRUG USAGE PROCESS [None]
